FAERS Safety Report 4610027-2 (Version None)
Quarter: 2005Q1

REPORT INFORMATION
  Report Type: 
  Country: None (occurrence: None)
  Receive Date: 20050316
  Receipt Date: 20050303
  Transmission Date: 20050727
  Serious: Yes (Other)
  Sender: FDA-Public Use
  Company Number: DE-ROCHE-397798

PATIENT
  Sex: Female

DRUGS (6)
  1. FUZEON [Suspect]
     Indication: HIV INFECTION
     Route: 058
  2. FUZEON [Suspect]
     Route: 058
  3. VIREAD [Concomitant]
     Indication: HIV INFECTION
     Dosage: RE-INTRODUCED ON UNKNOWN DATE.
  4. SUSTIVA [Concomitant]
     Indication: HIV INFECTION
     Dosage: RE-INTRODUCED ON UNKNOWN DATE.
  5. NORVIR [Concomitant]
     Indication: HIV INFECTION
     Dosage: RE-INTRODUCED ON UNKNOWN DATE.
  6. TELZIR [Concomitant]
     Indication: HIV INFECTION
     Dosage: RE-INTRODUCED ON UNKNOWN DATE.

REACTIONS (4)
  - HAEMOLYSIS [None]
  - HAEMOLYTIC ANAEMIA [None]
  - PNEUMONIA [None]
  - RENAL FAILURE ACUTE [None]
